FAERS Safety Report 23443747 (Version 1)
Quarter: 2024Q1

REPORT INFORMATION
  Report Type: Spontaneous
  Country: US (occurrence: None)
  Receive Date: 20240124
  Receipt Date: 20240124
  Transmission Date: 20240410
  Serious: No
  Sender: FDA-Public Use
  Company Number: None

PATIENT
  Age: 50 Year
  Sex: Female
  Weight: 56.25 kg

DRUGS (1)
  1. MONTELUKAST [Suspect]
     Active Substance: MONTELUKAST SODIUM
     Indication: Asthma
     Dosage: FREQUENCY : DAILY;?
     Route: 048

REACTIONS (9)
  - Abdominal discomfort [None]
  - Defaecation urgency [None]
  - Diarrhoea [None]
  - Aggression [None]
  - Depression [None]
  - Nightmare [None]
  - Tremor [None]
  - Sleep disorder [None]
  - Dysphonia [None]

NARRATIVE: CASE EVENT DATE: 20240114
